FAERS Safety Report 9026152 (Version 1)
Quarter: 2012Q4

REPORT INFORMATION
  Report Type: Spontaneous
  Country: US (occurrence: None)
  Receive Date: 20121207
  Receipt Date: 20121207
  Transmission Date: 20130627
  Serious: Yes (Hospitalization)
  Sender: FDA-Public Use
  Company Number: DSA_61237_2012

PATIENT
  Age: 66 Year
  Sex: Female

DRUGS (13)
  1. XENAZINE 25 MG (NOT SPECIFIED) [Suspect]
     Indication: DYSKINESIA
     Route: 048
  2. ALBUTEROL SULFATE [Concomitant]
  3. CLIMARA [Concomitant]
  4. CLONAZEPAM [Concomitant]
  5. GABAPENTIN [Concomitant]
  6. HYDROCORTISONE ACETATE W/ALOE [Concomitant]
  7. ISORBIDE [Concomitant]
  8. LISINOPRIL [Concomitant]
  9. LOVASTATIN [Concomitant]
  10. PLAVIX [Concomitant]
  11. PRISTIQ [Concomitant]
  12. SEROQUEL [Concomitant]
  13. SYNTHROID [Concomitant]

REACTIONS (1)
  - Pneumonia [None]
